FAERS Safety Report 9016242 (Version 1)
Quarter: 2013Q1

REPORT INFORMATION
  Report Type: Spontaneous
  Country: FR (occurrence: FR)
  Receive Date: 20130116
  Receipt Date: 20130116
  Transmission Date: 20140127
  Serious: Yes (Other)
  Sender: FDA-Public Use
  Company Number: FR-B.I. PHARMACEUTICALS,INC./RIDGEFIELD-2013-BI-00923BY

PATIENT
  Age: 62 Year
  Sex: Female

DRUGS (2)
  1. PRITOR [Suspect]
     Indication: HYPERTENSION
     Dosage: 4 ANZ
     Route: 048
     Dates: start: 20121118
  2. PENTASA [Concomitant]
     Route: 065

REACTIONS (3)
  - Asthenia [Recovered/Resolved]
  - Incorrect dose administered [Recovered/Resolved]
  - Medication error [Recovered/Resolved]
